FAERS Safety Report 8201121-8 (Version None)
Quarter: 2012Q1

REPORT INFORMATION
  Report Type: 
  Country: None (occurrence: None)
  Receive Date: 20120312
  Receipt Date: 20120228
  Transmission Date: 20120608
  Serious: Yes (Other)
  Sender: FDA-Public Use
  Company Number: JP-JNJFOC-20120112312

PATIENT
  Age: 15 Year
  Sex: Male

DRUGS (1)
  1. RISPERDAL [Suspect]
     Indication: PRODUCT USED FOR UNKNOWN INDICATION
     Route: 048
     Dates: end: 20120130

REACTIONS (1)
  - DYSTONIA [None]
